FAERS Safety Report 23335758 (Version 1)
Quarter: 2023Q4

REPORT INFORMATION
  Report Type: Spontaneous
  Country: US (occurrence: US)
  Receive Date: 20231225
  Receipt Date: 20231225
  Transmission Date: 20240110
  Serious: Yes (Hospitalization)
  Sender: FDA-Public Use
  Company Number: US-GTI-000001

PATIENT
  Age: 23 Year
  Sex: Female

DRUGS (4)
  1. PREDNISONE [Suspect]
     Active Substance: PREDNISONE
     Indication: Chorioretinitis
     Route: 048
  2. PREDNISONE [Suspect]
     Active Substance: PREDNISONE
     Indication: Chorioretinitis
     Route: 048
  3. SOLU-MEDROL [Concomitant]
     Active Substance: METHYLPREDNISOLONE SODIUM SUCCINATE
     Indication: Chorioretinitis
     Route: 042
  4. PREDNISONE [Suspect]
     Active Substance: PREDNISONE
     Indication: Chorioretinitis
     Route: 048

REACTIONS (7)
  - Visual field defect [Recovered/Resolved]
  - Headache [Recovered/Resolved]
  - Disease progression [Recovered/Resolved]
  - Noninfective chorioretinitis [Recovered/Resolved]
  - Pleocytosis [Recovered/Resolved]
  - Therapeutic response decreased [Recovered/Resolved]
  - Condition aggravated [Recovered/Resolved]
